FAERS Safety Report 6745933-6 (Version None)
Quarter: 2010Q2

REPORT INFORMATION
  Report Type: 
  Country: None (occurrence: None)
  Receive Date: 20100528
  Receipt Date: 20100514
  Transmission Date: 20101027
  Serious: Yes (Other)
  Sender: FDA-Public Use
  Company Number: JP-ELI_LILLY_AND_COMPANY-JP201004007432

PATIENT
  Age: 70 Year
  Sex: Female

DRUGS (7)
  1. EVISTA [Suspect]
     Indication: OSTEOPOROSIS
     Dosage: 60 MG, DAILY (1/D)
     Route: 048
     Dates: start: 20100203, end: 20100421
  2. ROCALTROL [Concomitant]
     Dosage: UNK, UNKNOWN
     Route: 065
  3. EPADEL [Concomitant]
     Dosage: UNK, UNKNOWN
     Route: 065
  4. NORVASC [Concomitant]
     Dosage: UNK, UNKNOWN
     Route: 065
  5. BIOFERMIN [Concomitant]
     Dosage: UNK, UNKNOWN
     Route: 065
  6. BERIZYM [Concomitant]
     Dosage: UNK, UNKNOWN
     Route: 065
  7. ASPIRIN [Concomitant]
     Dosage: UNK, UNKNOWN
     Route: 065

REACTIONS (1)
  - CATARACT [None]
